FAERS Safety Report 4538159-8 (Version None)
Quarter: 2004Q4

REPORT INFORMATION
  Report Type: 
  Country: None (occurrence: None)
  Receive Date: 20041223
  Receipt Date: 20041223
  Transmission Date: 20050328
  Serious: No
  Sender: FDA-Public Use
  Company Number: None

PATIENT
  Age: 27 Month
  Sex: Female
  Weight: 55.7924 kg

DRUGS (2)
  1. DEPO-PROVERA [Suspect]
     Indication: AMENORRHOEA
     Dates: start: 20040225, end: 20040527
  2. DEPO-PROVERA [Suspect]
     Indication: AMENORRHOEA
     Dates: start: 20040607, end: 20040907

REACTIONS (8)
  - ACTIVITIES OF DAILY LIVING IMPAIRED [None]
  - ARTHRALGIA [None]
  - BACK PAIN [None]
  - MENSTRUAL DISORDER [None]
  - MUSCULOSKELETAL STIFFNESS [None]
  - NECK PAIN [None]
  - OSTEOPOROSIS [None]
  - PAIN [None]
